FAERS Safety Report 8620823-2 (Version None)
Quarter: 2012Q3

REPORT INFORMATION
  Report Type: 
  Country: None (occurrence: None)
  Receive Date: 20120816
  Receipt Date: 20120816
  Transmission Date: 20120928
  Serious: Yes (Life-Threatening, Hospitalization)
  Sender: FDA-Public Use
  Company Number: None

PATIENT
  Age: 64 Year
  Sex: Male
  Weight: 103.4201 kg

DRUGS (1)
  1. GABAPENTIN [Suspect]
     Indication: SPINAL OPERATION
     Dosage: 1 AT BEDTIME FOR 2 DAYS, THEN 1 AM AND 2 AT BEDT;  2 AT BEDTIME FOR 2 DAYS, THEN
     Dates: start: 20120307, end: 20120312

REACTIONS (5)
  - LOSS OF CONSCIOUSNESS [None]
  - FEELING ABNORMAL [None]
  - VISION BLURRED [None]
  - ROAD TRAFFIC ACCIDENT [None]
  - BLOOD GLUCOSE DECREASED [None]
